FAERS Safety Report 7998412-2 (Version None)
Quarter: 2011Q4

REPORT INFORMATION
  Report Type: 
  Country: None (occurrence: None)
  Receive Date: 20111221
  Receipt Date: 20111005
  Transmission Date: 20120403
  Serious: No
  Sender: FDA-Public Use
  Company Number: US-GLAXOSMITHKLINE-A0947546A

PATIENT
  Age: 46 Year
  Sex: Female

DRUGS (2)
  1. LOVAZA [Suspect]
     Indication: ATTENTION DEFICIT/HYPERACTIVITY DISORDER
     Dosage: 4G PER DAY
     Route: 048
     Dates: start: 20100101, end: 20110701
  2. VITAMIN TAB [Concomitant]

REACTIONS (2)
  - OFF LABEL USE [None]
  - THERAPEUTIC RESPONSE UNEXPECTED [None]
